FAERS Safety Report 10570875 (Version 2)
Quarter: 2014Q4

REPORT INFORMATION
  Report Type: Spontaneous
  Country: US (occurrence: US)
  Receive Date: 20141107
  Receipt Date: 20141110
  Transmission Date: 20150529
  Serious: No
  Sender: FDA-Public Use
  Company Number: US-BAYER-2014-156277

PATIENT
  Age: 60 Year
  Sex: Female

DRUGS (1)
  1. MIRENA [Suspect]
     Active Substance: LEVONORGESTREL
     Indication: CONTRACEPTION
     Dosage: UNK
     Dates: start: 20141016, end: 20141016

REACTIONS (2)
  - Device difficult to use [None]
  - Menorrhagia [None]

NARRATIVE: CASE EVENT DATE: 2014
